FAERS Safety Report 4369412-9 (Version None)
Quarter: 2004Q2

REPORT INFORMATION
  Report Type: 
  Country: None (occurrence: None)
  Receive Date: 20040527
  Receipt Date: 20040411
  Transmission Date: 20050107
  Serious: Yes (Hospitalization)
  Sender: FDA-Public Use
  Company Number: KII-2004-0010500

PATIENT
  Age: 37 Year
  Sex: Male

DRUGS (4)
  1. OXYCONTIN [Suspect]
     Indication: PAIN
     Dosage: ORAL
     Route: 048
  2. CYCLOBENZAPRINE HCL [Suspect]
     Indication: DRUG USE FOR UNKNOWN INDICATION
     Dosage: ORAL
     Route: 048
  3. PHENOTHIAZINE (PHENOTHIAZINE) [Suspect]
     Indication: DRUG USE FOR UNKNOWN INDICATION
  4. MARIJUANA (CANNABIS) [Suspect]
     Indication: DRUG USE FOR UNKNOWN INDICATION

REACTIONS (11)
  - AGGRESSION [None]
  - AGITATION [None]
  - ALCOHOL WITHDRAWAL SYNDROME [None]
  - CONFUSIONAL STATE [None]
  - DRUG SCREEN POSITIVE [None]
  - FALSE POSITIVE LABORATORY RESULT [None]
  - HALLUCINATION [None]
  - HEART RATE INCREASED [None]
  - MYDRIASIS [None]
  - PYREXIA [None]
  - RESTLESSNESS [None]
